FAERS Safety Report 24927492 (Version 2)
Quarter: 2025Q1

REPORT INFORMATION
  Report Type: Spontaneous
  Country: NO (occurrence: NO)
  Receive Date: 20250205
  Receipt Date: 20250218
  Transmission Date: 20250409
  Serious: Yes (Other)
  Sender: VIIV
  Company Number: None

PATIENT

DRUGS (5)
  1. VOCABRIA [Suspect]
     Active Substance: CABOTEGRAVIR SODIUM
     Indication: HIV infection
     Route: 065
     Dates: start: 20240621
  2. VOCABRIA [Suspect]
     Active Substance: CABOTEGRAVIR SODIUM
     Dosage: 400 MG, MO (SECOND DOSE (ONE MONTH AFTER INITIATION) AND FORWARD)
     Route: 065
     Dates: start: 202407, end: 20250102
  3. VOCABRIA [Suspect]
     Active Substance: CABOTEGRAVIR SODIUM
  4. RILPIVIRINE [Suspect]
     Active Substance: RILPIVIRINE
     Indication: HIV infection
     Route: 065
     Dates: start: 20240621
  5. RILPIVIRINE [Suspect]
     Active Substance: RILPIVIRINE
     Dosage: 600 MG, MO (SECOND DOSE (ONE MONTH AFTER INITIATION) AND FORWARD))
     Route: 065
     Dates: start: 202407, end: 20250102

REACTIONS (2)
  - Pathogen resistance [Unknown]
  - Drug ineffective [Unknown]

NARRATIVE: CASE EVENT DATE: 20241202
